FAERS Safety Report 12939816 (Version 1)
Quarter: 2016Q4

REPORT INFORMATION
  Report Type: Report from Study
  Country: None (occurrence: US)
  Receive Date: 20161115
  Receipt Date: 20161115
  Transmission Date: 20170207
  Serious: Yes (Other)
  Sender: FDA-Public Use
  Company Number: US-ABBVIE-16K-163-1682844-00

PATIENT
  Sex: Female

DRUGS (2)
  1. HUMIRA [Suspect]
     Active Substance: ADALIMUMAB
     Indication: PSORIATIC ARTHROPATHY
     Route: 058
     Dates: start: 20160620, end: 2016
  2. HUMIRA [Suspect]
     Active Substance: ADALIMUMAB
     Route: 058
     Dates: start: 2016

REACTIONS (24)
  - Local swelling [Unknown]
  - Depression [Unknown]
  - Musculoskeletal stiffness [Unknown]
  - Frustration tolerance decreased [Unknown]
  - Hypoaesthesia [Unknown]
  - Back pain [Unknown]
  - Neck pain [Unknown]
  - Joint stiffness [Unknown]
  - Hypersensitivity [Unknown]
  - Pain [Unknown]
  - Balance disorder [Unknown]
  - Fatigue [Recovering/Resolving]
  - Visual impairment [Not Recovered/Not Resolved]
  - Grip strength decreased [Not Recovered/Not Resolved]
  - Pain in extremity [Unknown]
  - Uterine haemorrhage [Unknown]
  - Gait disturbance [Unknown]
  - Disability [Unknown]
  - Peripheral swelling [Recovering/Resolving]
  - Paraesthesia [Unknown]
  - Dependence [Unknown]
  - Anxiety [Unknown]
  - Activities of daily living impaired [Unknown]
  - Arthralgia [Unknown]

NARRATIVE: CASE EVENT DATE: 2016
